FAERS Safety Report 8495902-3 (Version None)
Quarter: 2012Q3

REPORT INFORMATION
  Report Type: 
  Country: None (occurrence: None)
  Receive Date: 20120709
  Receipt Date: 20120703
  Transmission Date: 20120928
  Serious: Yes (Hospitalization)
  Sender: FDA-Public Use
  Company Number: US-GLAXOSMITHKLINE-A0709958A

PATIENT
  Age: 58 Year
  Sex: Male
  Weight: 80 kg

DRUGS (7)
  1. AVANDIA [Suspect]
     Indication: TYPE 2 DIABETES MELLITUS
     Dosage: 4MG PER DAY
     Route: 048
     Dates: start: 20050311, end: 20050318
  2. FUROSEMIDE [Concomitant]
  3. PLAVIX [Concomitant]
  4. AVANDAMET [Suspect]
     Indication: TYPE 2 DIABETES MELLITUS
     Route: 048
     Dates: start: 20050218, end: 20050311
  5. DIOVAN [Concomitant]
     Indication: HYPERTENSION
  6. PRAVACHOL [Concomitant]
  7. METFORMIN HCL [Concomitant]

REACTIONS (7)
  - MYOCARDIAL INFARCTION [None]
  - PNEUMOTHORAX [None]
  - CARDIAC FAILURE CONGESTIVE [None]
  - PLEURAL EFFUSION [None]
  - CARDIOVASCULAR DISORDER [None]
  - PAIN [None]
  - CORONARY ARTERY DISEASE [None]
